FAERS Safety Report 7544478-3 (Version None)
Quarter: 2011Q2

REPORT INFORMATION
  Report Type: 
  Country: None (occurrence: None)
  Receive Date: 20110613
  Receipt Date: 20110510
  Transmission Date: 20111010
  Serious: Yes (Other)
  Sender: FDA-Public Use
  Company Number: PHHY2011IT39568

PATIENT
  Sex: Female

DRUGS (6)
  1. GELOFUSINE (SUCCINYLATED GELATIN) [Concomitant]
     Dosage: 1000 ML, UNK
  2. ONDANSETRON [Concomitant]
     Indication: NAUSEA
     Dosage: 8 MG, UNK
     Dates: start: 20110426, end: 20110426
  3. VOLTAREN [Suspect]
     Indication: ANALGESIC THERAPY
     Dosage: 75 G/ 3 ML
     Route: 030
     Dates: start: 20110426, end: 20110426
  4. NEXIUM [Concomitant]
     Indication: ABDOMINAL PAIN UPPER
     Dosage: 40 MG, UNK
     Dates: start: 20110426
  5. OSSITOCINA BIL [Concomitant]
     Dosage: 20 IU, UNK
  6. ELETTROLITICA BILANCIATA DI MANTENIMENTO CON GLUCOSIO [Concomitant]

REACTIONS (2)
  - TRYPTASE INCREASED [None]
  - ERYTHEMA MULTIFORME [None]
